FAERS Safety Report 25610177 (Version 3)
Quarter: 2025Q3

REPORT INFORMATION
  Report Type: Spontaneous
  Country: US (occurrence: US)
  Receive Date: 20250728
  Receipt Date: 20250801
  Transmission Date: 20251021
  Serious: No
  Sender: Unknown Manufacturer
  Company Number: US-MTPC-MTPA2025-0013457

PATIENT
  Sex: Female

DRUGS (7)
  1. RADICAVA ORS [Suspect]
     Active Substance: EDARAVONE
     Indication: Amyotrophic lateral sclerosis
     Route: 048
     Dates: start: 20250515
  2. RADICAVA ORS [Suspect]
     Active Substance: EDARAVONE
     Indication: Amyotrophic lateral sclerosis
     Route: 048
     Dates: start: 20250515
  3. ASPIRIN [Concomitant]
     Active Substance: ASPIRIN
     Indication: Product used for unknown indication
     Route: 065
  4. MAGNESIUM [Concomitant]
     Active Substance: MAGNESIUM
     Indication: Product used for unknown indication
     Route: 065
  5. RILUZOLE [Concomitant]
     Active Substance: RILUZOLE
     Indication: Product used for unknown indication
     Route: 065
  6. SIMVASTATIN [Concomitant]
     Active Substance: SIMVASTATIN
     Indication: Product used for unknown indication
     Route: 065
  7. VITAMINS NOS [Concomitant]
     Active Substance: VITAMINS
     Indication: Product used for unknown indication
     Route: 065

REACTIONS (7)
  - Fall [Unknown]
  - Face injury [Unknown]
  - Condition aggravated [Unknown]
  - Asthenia [Unknown]
  - Back pain [Unknown]
  - Musculoskeletal discomfort [Unknown]
  - Dysstasia [Unknown]

NARRATIVE: CASE EVENT DATE: 20250515
